FAERS Safety Report 7345994-X (Version None)
Quarter: 2011Q1

REPORT INFORMATION
  Report Type: 
  Country: None (occurrence: None)
  Receive Date: 20110308
  Receipt Date: 20110308
  Transmission Date: 20110831
  Serious: Yes (Other)
  Sender: FDA-Public Use
  Company Number: None

PATIENT
  Sex: Female
  Weight: 73.0291 kg

DRUGS (1)
  1. NORTRIPTYLINE HCL [Suspect]
     Indication: MUSCLE SPASMS
     Dates: start: 20091216, end: 20091221

REACTIONS (2)
  - SUICIDAL IDEATION [None]
  - HALLUCINATION [None]
